FAERS Safety Report 11286395 (Version 1)
Quarter: 2015Q3

REPORT INFORMATION
  Report Type: Spontaneous
  Country: US (occurrence: US)
  Receive Date: 20150721
  Receipt Date: 20150721
  Transmission Date: 20151125
  Serious: No
  Sender: FDA-Public Use
  Company Number: US-UNITED THERAPEUTICS-UNT-2015-002444

PATIENT
  Sex: Female
  Weight: 60.77 kg

DRUGS (1)
  1. TYVASO [Suspect]
     Active Substance: TREPROSTINIL
     Indication: PULMONARY HYPERTENSION
     Dosage: 60 ?G, QID

REACTIONS (4)
  - Cough [Unknown]
  - Treatment noncompliance [Unknown]
  - Nasopharyngitis [Unknown]
  - Drug dose omission [Unknown]
